FAERS Safety Report 6868158-2 (Version None)
Quarter: 2010Q3

REPORT INFORMATION
  Report Type: 
  Country: None (occurrence: None)
  Receive Date: 20100722
  Receipt Date: 20080514
  Transmission Date: 20110219
  Serious: No
  Sender: FDA-Public Use
  Company Number: US-PFIZER INC-2008042623

PATIENT
  Sex: Female

DRUGS (4)
  1. CHANTIX [Suspect]
     Indication: SMOKING CESSATION THERAPY
     Dates: start: 20070101
  2. NIFEDIPINE [Concomitant]
     Indication: HYPERTENSION
  3. LEVOTHYROXINE SODIUM [Concomitant]
     Indication: THYROID DISORDER
  4. NIASPAN [Concomitant]

REACTIONS (3)
  - DRUG INEFFECTIVE [None]
  - HERPES ZOSTER [None]
  - NAUSEA [None]
